FAERS Safety Report 21959498 (Version 1)
Quarter: 2023Q1

REPORT INFORMATION
  Report Type: Spontaneous
  Country: RU (occurrence: RU)
  Receive Date: 20230206
  Receipt Date: 20230206
  Transmission Date: 20230418
  Serious: Yes (Other)
  Sender: FDA-Public Use
  Company Number: RU-BAYER-2023P006371

PATIENT
  Age: 52 Year
  Sex: Female

DRUGS (2)
  1. STIVARGA [Suspect]
     Active Substance: REGORAFENIB
     Indication: Hepatocellular carcinoma
     Dosage: 40 MG 2 TIMES A DAY
     Route: 048
     Dates: start: 201808
  2. CAPECITABINE\OXALIPLATIN [Concomitant]
     Active Substance: CAPECITABINE\OXALIPLATIN
     Dosage: UNKNOWN
     Dates: start: 201606

REACTIONS (2)
  - Phaeochromocytoma [None]
  - Off label use [None]
